FAERS Safety Report 8261996-3 (Version None)
Quarter: 2012Q2

REPORT INFORMATION
  Report Type: 
  Country: None (occurrence: None)
  Receive Date: 20120405
  Receipt Date: 20120330
  Transmission Date: 20120825
  Serious: Yes (Death, Hospitalization, Other)
  Sender: FDA-Public Use
  Company Number: US-CELGENEUS-163-21880-12040130

PATIENT
  Sex: Female

DRUGS (10)
  1. CARVEDILOL [Concomitant]
     Route: 065
  2. LATANOPROST [Concomitant]
     Route: 065
  3. REVLIMID [Suspect]
     Dosage: 10 MILLIGRAM
     Route: 048
     Dates: start: 20101201, end: 20110101
  4. FUROSEMIDE [Concomitant]
     Route: 065
  5. ANTIBIOTICS [Concomitant]
     Route: 065
     Dates: start: 20111201
  6. GABAPENTIN [Concomitant]
     Route: 065
  7. CYMBALTA [Concomitant]
     Route: 065
  8. REVLIMID [Suspect]
     Dosage: 10 MILLIGRAM
     Route: 048
     Dates: start: 20110101, end: 20111101
  9. HYDROCODONE BITARTRATE AND ACETAMINOPHEN [Concomitant]
     Route: 065
  10. ROPINIROLE [Concomitant]
     Route: 065

REACTIONS (3)
  - PANCYTOPENIA [None]
  - URINARY TRACT INFECTION [None]
  - DEATH [None]
